FAERS Safety Report 6144474-7 (Version None)
Quarter: 2009Q2

REPORT INFORMATION
  Report Type: 
  Country: None (occurrence: None)
  Receive Date: 20090406
  Receipt Date: 20090325
  Transmission Date: 20091009
  Serious: Yes (Death, Hospitalization, Other)
  Sender: FDA-Public Use
  Company Number: US-PFIZER INC-2009181452

PATIENT
  Sex: Female
  Weight: 73.923 kg

DRUGS (9)
  1. AXITINIB [Suspect]
     Indication: COLORECTAL CANCER
     Dosage: 5 MG, 2X/DAY
     Route: 048
     Dates: start: 20080722, end: 20090310
  2. IRINOTECAN HCL [Suspect]
     Indication: COLORECTAL CANCER
     Dosage: 220 MG, EVERY 2 WEEKS
     Route: 042
     Dates: start: 20080722, end: 20090310
  3. FLUOROURACIL [Suspect]
     Indication: COLORECTAL CANCER
     Dosage: 500 MG, EVERY 2 WEEKS
     Route: 040
     Dates: start: 20080722, end: 20090310
  4. FLUOROURACIL [Suspect]
     Dosage: 2950 MG, EVERY 2 WEEKS
     Route: 042
     Dates: start: 20080722, end: 20090310
  5. CALCIUM FOLINATE [Suspect]
     Indication: COLORECTAL CANCER
     Dosage: 750 MG, EVERY 2 WEEKS
     Route: 042
     Dates: start: 20080722, end: 20090310
  6. FLEXERIL [Concomitant]
     Indication: ARTHRALGIA
     Dosage: 5 MG, 3X/DAY
     Dates: start: 20081117
  7. HYDROCHLOROTHIAZIDE [Concomitant]
     Indication: HYPERTENSION
     Dosage: 25 MG, 1X/DAY
  8. PAREGORIC [Concomitant]
     Indication: DIARRHOEA
     Dosage: 2 MG, AS NEEDED
     Dates: start: 20081229
  9. LEVOTHROID [Concomitant]
     Indication: HYPOTHYROIDISM
     Dosage: 100 UG, 1X/DAY
     Dates: start: 20081117

REACTIONS (2)
  - COLORECTAL CANCER [None]
  - DISEASE PROGRESSION [None]
